FAERS Safety Report 7968244-X (Version None)
Quarter: 2011Q4

REPORT INFORMATION
  Report Type: 
  Country: None (occurrence: None)
  Receive Date: 20111209
  Receipt Date: 20111201
  Transmission Date: 20120403
  Serious: Yes (Other)
  Sender: FDA-Public Use
  Company Number: PHEH2011US010670

PATIENT
  Sex: Female

DRUGS (3)
  1. DIOVAN [Suspect]
     Dosage: 1 DF, (160MG) DAILY
  2. DIOVAN [Suspect]
     Dosage: 1 DF, (320MG) DAILY
  3. DIOVAN [Suspect]
     Dosage: 160 MG, UNK

REACTIONS (3)
  - DRUG INEFFECTIVE [None]
  - PNEUMONIA PRIMARY ATYPICAL [None]
  - BLOOD PRESSURE INCREASED [None]
